FAERS Safety Report 8817870 (Version 1)
Quarter: 2012Q4

REPORT INFORMATION
  Report Type: 
  Country: JP (occurrence: JP)
  Receive Date: 20121004
  Receipt Date: 20121004
  Transmission Date: 20130627
  Serious: Yes (Other)
  Sender: FDA-Public Use
  Company Number: JP-ROCHE-1136330

PATIENT
  Age: 60 Year
  Sex: Male

DRUGS (14)
  1. AVASTIN [Suspect]
     Indication: COLON CANCER RECURRENT
     Dosage: Uncertain dosage and one course
     Route: 041
     Dates: start: 20100324
  2. AVASTIN [Suspect]
     Indication: COLON CANCER RECURRENT
     Dosage: Dosage is uncertain.
     Route: 041
  3. OXALIPLATIN [Suspect]
     Indication: COLON CANCER RECURRENT
     Dosage: Uncertain dosage and two courses
     Route: 041
  4. OXALIPLATIN [Suspect]
     Indication: COLON CANCER RECURRENT
     Dosage: Uncertain dosage and one course
     Route: 041
     Dates: start: 20100324
  5. OXALIPLATIN [Suspect]
     Indication: COLON CANCER RECURRENT
     Dosage: Dosage is uncertain.
     Route: 041
  6. LEVOFOLINATE [Suspect]
     Indication: COLON CANCER RECURRENT
     Dosage: Uncertain dosage and two courses
     Route: 041
  7. LEVOFOLINATE [Suspect]
     Indication: COLON CANCER RECURRENT
     Dosage: Uncertain dosage and one course
     Route: 041
     Dates: start: 20100324
  8. LEVOFOLINATE [Suspect]
     Indication: COLON CANCER RECURRENT
     Dosage: Dosage is uncertain.
     Route: 041
  9. 5-FU [Suspect]
     Indication: COLON CANCER RECURRENT
     Dosage: Uncertain dosage and two courses
     Route: 040
  10. 5-FU [Suspect]
     Indication: COLON CANCER RECURRENT
     Dosage: Uncertain dosage and two courses
     Route: 041
  11. 5-FU [Suspect]
     Indication: COLON CANCER RECURRENT
     Dosage: Uncertain dosage and one course
     Route: 040
     Dates: start: 20100324
  12. 5-FU [Suspect]
     Indication: COLON CANCER RECURRENT
     Dosage: Uncertain dosage and one course
     Route: 041
     Dates: start: 20100324
  13. 5-FU [Suspect]
     Indication: COLON CANCER RECURRENT
     Dosage: Dosage is uncertain.
     Route: 040
  14. 5-FU [Suspect]
     Indication: COLON CANCER RECURRENT
     Dosage: Dosage is uncertain.
     Route: 041

REACTIONS (4)
  - Iliac artery occlusion [Unknown]
  - Mechanical ileus [Unknown]
  - Graft infection [Unknown]
  - Device related infection [Unknown]
